FAERS Safety Report 18404124 (Version 1)
Quarter: 2020Q4

REPORT INFORMATION
  Report Type: Spontaneous
  Country: US (occurrence: US)
  Receive Date: 20201020
  Receipt Date: 20201020
  Transmission Date: 20210114
  Serious: Yes (Hospitalization)
  Sender: FDA-Public Use
  Company Number: None

PATIENT
  Age: 58 Year
  Sex: Female

DRUGS (4)
  1. ATENOLOL. [Concomitant]
     Active Substance: ATENOLOL
  2. AMBRISENTAN [Concomitant]
     Active Substance: AMBRISENTAN
  3. RINVOQ [Concomitant]
     Active Substance: UPADACITINIB
  4. TADALAFIL TAB 20MG A2 [Suspect]
     Active Substance: TADALAFIL
     Route: 048
     Dates: start: 20200513

REACTIONS (3)
  - Gait disturbance [None]
  - Sepsis [None]
  - Joint swelling [None]

NARRATIVE: CASE EVENT DATE: 20200928
